FAERS Safety Report 6038531-3 (Version None)
Quarter: 2009Q1

REPORT INFORMATION
  Report Type: 
  Country: None (occurrence: None)
  Receive Date: 20090115
  Receipt Date: 20080806
  Transmission Date: 20090719
  Serious: No
  Sender: FDA-Public Use
  Company Number: US-KINGPHARMUSA00001-K200800930

PATIENT
  Sex: Male
  Weight: 81.633 kg

DRUGS (2)
  1. EPIPEN [Suspect]
     Indication: FOOD ALLERGY
     Dosage: .3 MG, SINGLE
     Route: 030
     Dates: start: 20080801, end: 20080801
  2. MOBIC [Concomitant]
     Indication: HIP ARTHROPLASTY

REACTIONS (1)
  - DRUG INEFFECTIVE [None]
